FAERS Safety Report 20802780 (Version 2)
Quarter: 2022Q2

REPORT INFORMATION
  Report Type: Other
  Country: GB (occurrence: None)
  Receive Date: 20220509
  Receipt Date: 20220607
  Transmission Date: 20220721
  Serious: Yes (Death, Hospitalization, Other)
  Sender: FDA-Public Use
  Company Number: GB-ROCHE-3090549

PATIENT
  Age: 75 Year
  Sex: Male
  Weight: 82.6 kg

DRUGS (13)
  1. ATEZOLIZUMAB [Suspect]
     Active Substance: ATEZOLIZUMAB
     Indication: Hepatocellular carcinoma
     Dosage: LAST DOSE OF ATEZOLIZUMAB ADMINISTERED PRIOR TO AE 1200 MG??ON 26/APR/2022 STARTED MOST RECENT DOSE
     Route: 041
     Dates: start: 20220405
  2. BEVACIZUMAB [Suspect]
     Active Substance: BEVACIZUMAB
     Indication: Hepatocellular carcinoma
     Route: 065
     Dates: start: 20220426
  3. ACETAMINOPHEN [Concomitant]
     Active Substance: ACETAMINOPHEN
     Indication: Pain
  4. LOPERAMIDE [Concomitant]
     Active Substance: LOPERAMIDE
     Indication: Diarrhoea
  5. CODEINE [Concomitant]
     Active Substance: CODEINE
     Indication: Pain
  6. CIPROFLOXACIN [Concomitant]
     Active Substance: CIPROFLOXACIN
     Dates: start: 20220314
  7. LANSOPRAZOLE [Concomitant]
     Active Substance: LANSOPRAZOLE
  8. METFORMIN [Concomitant]
     Active Substance: METFORMIN HYDROCHLORIDE
  9. SIMVASTATIN [Concomitant]
     Active Substance: SIMVASTATIN
  10. BECLOMETHASONE\FORMOTEROL [Concomitant]
     Active Substance: BECLOMETHASONE\FORMOTEROL
  11. ALBUTEROL [Concomitant]
     Active Substance: ALBUTEROL
  12. PIPERACILLIN [Concomitant]
     Active Substance: PIPERACILLIN
     Dates: start: 20220502, end: 20220503
  13. ENOXAPARIN [Concomitant]
     Active Substance: ENOXAPARIN
     Dates: start: 20220502, end: 20220503

REACTIONS (6)
  - Intestinal perforation [Fatal]
  - Acute kidney injury [Not Recovered/Not Resolved]
  - Diarrhoea [Fatal]
  - Vomiting [Recovered/Resolved]
  - Influenza like illness [Recovered/Resolved]
  - Abdominal pain [Not Recovered/Not Resolved]

NARRATIVE: CASE EVENT DATE: 20220501
